FAERS Safety Report 7871514-7 (Version None)
Quarter: 2011Q4

REPORT INFORMATION
  Report Type: 
  Country: None (occurrence: None)
  Receive Date: 20111029
  Receipt Date: 20110303
  Transmission Date: 20120403
  Serious: No
  Sender: FDA-Public Use
  Company Number: US-AMGEN-USASP2011003874

PATIENT
  Age: 51 Year

DRUGS (1)
  1. ENBREL [Suspect]
     Indication: PRODUCT USED FOR UNKNOWN INDICATION
     Dosage: 50 MG, QWK
     Dates: start: 20100601

REACTIONS (5)
  - HLA MARKER STUDY POSITIVE [None]
  - BONE FISSURE [None]
  - THERAPEUTIC RESPONSE UNEXPECTED [None]
  - PAIN [None]
  - INJECTION SITE PAIN [None]
